FAERS Safety Report 4551740-5 (Version None)
Quarter: 2005Q1

REPORT INFORMATION
  Report Type: 
  Country: None (occurrence: None)
  Receive Date: 20050110
  Receipt Date: 20041224
  Transmission Date: 20050727
  Serious: Yes (Death, Hospitalization)
  Sender: FDA-Public Use
  Company Number: DSA_25534_2004

PATIENT
  Age: 79 Year
  Sex: Female

DRUGS (4)
  1. TEVETEN [Suspect]
     Indication: HYPERTENSION
     Dosage: 600 MG
  2. FUROSEMIDE [Concomitant]
  3. FALITHROM [Concomitant]
  4. DIGITOXIN TAB [Concomitant]

REACTIONS (1)
  - MYOCARDIAL INFARCTION [None]
